FAERS Safety Report 22809199 (Version 2)
Quarter: 2024Q4

REPORT INFORMATION
  Report Type: Report from Study
  Country: US (occurrence: US)
  Receive Date: 20230810
  Receipt Date: 20241224
  Transmission Date: 20250114
  Serious: Yes (Life-Threatening, Other)
  Sender: RANBAXY
  Company Number: US-SUN PHARMACEUTICAL INDUSTRIES LTD-2023R1-385381

PATIENT
  Age: 71 Year
  Sex: Female

DRUGS (1)
  1. CLOZAPINE [Suspect]
     Active Substance: CLOZAPINE
     Indication: Product used for unknown indication
     Dosage: UNK
     Route: 065

REACTIONS (2)
  - Neutropenia [Unknown]
  - Neutrophilia [Unknown]

NARRATIVE: CASE EVENT DATE: 20230210
